FAERS Safety Report 11429120 (Version 1)
Quarter: 2015Q3

REPORT INFORMATION
  Report Type: Other
  Country: JP (occurrence: JP)
  Receive Date: 20150828
  Receipt Date: 20150828
  Transmission Date: 20151125
  Serious: Yes (Death)
  Sender: FDA-Public Use
  Company Number: JP-ACTELION-A-CH2015-123050

PATIENT
  Age: 61 Year
  Sex: Female

DRUGS (1)
  1. EPOPROSTENOL ACT [Suspect]
     Active Substance: EPOPROSTENOL
     Indication: PULMONARY HYPERTENSION
     Route: 042

REACTIONS (4)
  - Loss of consciousness [Fatal]
  - Circulatory collapse [Fatal]
  - Cardiac arrest [Fatal]
  - Implantable defibrillator insertion [Unknown]
